FAERS Safety Report 13652071 (Version 1)
Quarter: 2017Q2

REPORT INFORMATION
  Report Type: Report from Study
  Country: JP (occurrence: JP)
  Receive Date: 20170614
  Receipt Date: 20170614
  Transmission Date: 20170830
  Serious: Yes (Other)
  Sender: FDA-Public Use
  Company Number: JP-JNJFOC-20170608328

PATIENT

DRUGS (2)
  1. TENELIGLIPTIN [Suspect]
     Active Substance: TENELIGLIPTIN
     Indication: TYPE 2 DIABETES MELLITUS
     Route: 048
  2. CANAGLIFLOZIN [Suspect]
     Active Substance: CANAGLIFLOZIN
     Indication: TYPE 2 DIABETES MELLITUS
     Route: 048

REACTIONS (6)
  - Cardiovascular disorder [Unknown]
  - Gastrointestinal disorder [Unknown]
  - Fracture [Unknown]
  - Blood ketone body increased [Unknown]
  - Adverse reaction [Unknown]
  - Skin disorder [Unknown]
